FAERS Safety Report 10769211 (Version 1)
Quarter: 2015Q1

REPORT INFORMATION
  Report Type: Spontaneous
  Country: US (occurrence: US)
  Receive Date: 20150206
  Receipt Date: 20150206
  Transmission Date: 20150721
  Serious: Yes (Death)
  Sender: FDA-Public Use
  Company Number: US-PERRIGO-15US001351

PATIENT
  Age: 38 Year
  Sex: Female

DRUGS (7)
  1. DOXYLAMINE SUCCINATE 25 MG 441 [Suspect]
     Active Substance: DOXYLAMINE SUCCINATE
     Indication: DRUG ABUSE
     Dosage: UNKNOWN, UNKNOWN
     Route: 065
  2. QUININE [Suspect]
     Active Substance: QUININE
     Indication: DRUG ABUSE
     Dosage: UNKNOWN, UNKNOWN
     Route: 065
  3. HEROIN [Suspect]
     Active Substance: DIACETYLMORPHINE
     Indication: DRUG ABUSE
     Dosage: UNKNOWN, UNKNOWN
     Route: 065
  4. DIPHENHYDRAMINE HYDROCHLORIDE 25 MG 479 [Suspect]
     Active Substance: DIPHENHYDRAMINE HYDROCHLORIDE
     Indication: DRUG ABUSE
     Dosage: UNKNOWN, UNKNOWN
     Route: 065
  5. COCAINE [Suspect]
     Active Substance: COCAINE
     Indication: DRUG ABUSE
     Dosage: UNKNOWN, UNKNOWN
     Route: 065
  6. CODEINE [Suspect]
     Active Substance: CODEINE
     Indication: DRUG ABUSE
     Dosage: UNKNOWN, UNKNOWN
     Route: 065
  7. SERTRALINE [Suspect]
     Active Substance: SERTRALINE HYDROCHLORIDE
     Indication: DRUG ABUSE
     Dosage: UNKNOWN, UNKNOWN
     Route: 065

REACTIONS (2)
  - Death [Fatal]
  - Drug abuse [None]
